FAERS Safety Report 22155052 (Version 1)
Quarter: 2023Q1

REPORT INFORMATION
  Report Type: Report from Study
  Country: US (occurrence: US)
  Receive Date: 20230330
  Receipt Date: 20230330
  Transmission Date: 20230417
  Serious: Yes (Other)
  Sender: FDA-Public Use
  Company Number: US-MYLANLABS-2023M1031701

PATIENT

DRUGS (1)
  1. NEURONTIN [Suspect]
     Active Substance: GABAPENTIN
     Indication: Product used for unknown indication
     Dosage: UNK
     Route: 065

REACTIONS (7)
  - Mental impairment [Unknown]
  - Suicidal ideation [Unknown]
  - Aphasia [Unknown]
  - Aggression [Unknown]
  - Amnesia [Unknown]
  - Anger [Unknown]
  - Anxiety [Unknown]
